FAERS Safety Report 9290850 (Version 1)
Quarter: 2013Q2

REPORT INFORMATION
  Report Type: Spontaneous
  Country: US (occurrence: None)
  Receive Date: 20130514
  Receipt Date: 20130514
  Transmission Date: 20140414
  Serious: Yes (Other)
  Sender: FDA-Public Use
  Company Number: None

PATIENT
  Age: 35 Year
  Sex: Female
  Weight: 68.04 kg

DRUGS (1)
  1. MIRENA [Suspect]
     Indication: CONTRACEPTION
     Route: 015
     Dates: start: 20120311, end: 20130502

REACTIONS (11)
  - Dizziness [None]
  - Vertigo [None]
  - Hot flush [None]
  - Heart rate increased [None]
  - Weight increased [None]
  - Local swelling [None]
  - Abdominal distension [None]
  - Headache [None]
  - Visual impairment [None]
  - Chest pain [None]
  - Viral infection [None]
